FAERS Safety Report 22641565 (Version 1)
Quarter: 2023Q2

REPORT INFORMATION
  Report Type: Spontaneous
  Country: US (occurrence: None)
  Receive Date: 20230624
  Receipt Date: 20230624
  Transmission Date: 20230722
  Serious: Yes (unspecified)
  Sender: FDA-Public Use
  Company Number: None

PATIENT
  Age: 69 Year
  Sex: Female
  Weight: 56.25 kg

DRUGS (7)
  1. PROLIA [Suspect]
     Active Substance: DENOSUMAB
     Indication: Osteoporosis
     Dosage: OTHER QUANTITY : 1 INJECTION(S);?OTHER FREQUENCY : EVERY 6 MO.;?OTHER ROUTE : INJECTION BY A RHEUMAT
     Route: 050
     Dates: start: 20220105, end: 20230118
  2. ROSUVASTATIN [Concomitant]
     Active Substance: ROSUVASTATIN
  3. FAMOTIDINE [Concomitant]
     Active Substance: FAMOTIDINE
  4. Alprazolamo [Concomitant]
  5. VITAMIN D [Concomitant]
     Active Substance: VITAMIN D NOS
  6. COENZYME Q10 [Concomitant]
     Active Substance: DIETARY SUPPLEMENT\UBIDECARENONE
  7. ADVIL [Concomitant]
     Active Substance: IBUPROFEN

REACTIONS (5)
  - Pruritus [None]
  - Alopecia [None]
  - Paraesthesia [None]
  - Feeling hot [None]
  - Alopecia [None]

NARRATIVE: CASE EVENT DATE: 20230415
